FAERS Safety Report 20762647 (Version 1)
Quarter: 2022Q2

REPORT INFORMATION
  Report Type: Spontaneous
  Country: US (occurrence: None)
  Receive Date: 20220427
  Receipt Date: 20220427
  Transmission Date: 20220720
  Serious: Yes (Life-Threatening, Hospitalization, Disabling, Other)
  Sender: FDA-Public Use
  Company Number: None

PATIENT
  Age: 62 Year
  Sex: Female
  Weight: 76.5 kg

DRUGS (1)
  1. REGLAN [Suspect]
     Active Substance: METOCLOPRAMIDE HYDROCHLORIDE
     Indication: Impaired gastric emptying
     Route: 042
     Dates: start: 20220129, end: 20220220

REACTIONS (12)
  - Dystonia [None]
  - Asthenia [None]
  - Depression [None]
  - Dizziness [None]
  - Loss of consciousness [None]
  - Dyskinesia [None]
  - Dyskinesia [None]
  - Muscle spasms [None]
  - Dyspnoea [None]
  - Alcohol poisoning [None]
  - Near death experience [None]
  - Nervous system disorder [None]

NARRATIVE: CASE EVENT DATE: 20220129
